FAERS Safety Report 11610755 (Version 1)
Quarter: 2015Q4

REPORT INFORMATION
  Report Type: Spontaneous
  Country: US (occurrence: None)
  Receive Date: 20151007
  Receipt Date: 20151007
  Transmission Date: 20160304
  Serious: No
  Sender: FDA-Public Use
  Company Number: None

PATIENT
  Age: 38 Year
  Sex: Female
  Weight: 54.43 kg

DRUGS (5)
  1. HYDROMORPHONE HCL [Suspect]
     Active Substance: HYDROMORPHONE HYDROCHLORIDE
     Indication: PAIN
     Dosage: 1 PILL
     Route: 048
     Dates: start: 20150930, end: 20151006
  2. TRI-PREVIFEN (BCP) [Concomitant]
  3. VALACYCLOVIR NCL [Concomitant]
  4. NATURE^S BOUNTY BIOTIN [Concomitant]
  5. MULTI COMPLETE VITAMIN [Concomitant]

REACTIONS (2)
  - Chest pain [None]
  - Product quality issue [None]

NARRATIVE: CASE EVENT DATE: 20150930
